FAERS Safety Report 21672518 (Version 6)
Quarter: 2023Q1

REPORT INFORMATION
  Report Type: Spontaneous
  Country: PR (occurrence: PR)
  Receive Date: 20221202
  Receipt Date: 20230321
  Transmission Date: 20230418
  Serious: Yes (Other)
  Sender: FDA-Public Use
  Company Number: PR-JNJFOC-20221162134

PATIENT
  Age: 51 Year
  Sex: Male

DRUGS (2)
  1. ERLEADA [Suspect]
     Active Substance: APALUTAMIDE
     Indication: Prostate cancer
     Dosage: 60MG 4 TABLETS DAILY
     Route: 048
  2. ERLEADA [Suspect]
     Active Substance: APALUTAMIDE
     Route: 048

REACTIONS (12)
  - Prostate cancer [Unknown]
  - Drug ineffective [Unknown]
  - Fatigue [Not Recovered/Not Resolved]
  - Nausea [Not Recovered/Not Resolved]
  - Anaemia [Not Recovered/Not Resolved]
  - Abdominal discomfort [Unknown]
  - Bone pain [Not Recovered/Not Resolved]
  - Infection [Unknown]
  - Pain [Not Recovered/Not Resolved]
  - Dizziness [Recovered/Resolved]
  - Asthenia [Recovered/Resolved]
  - Nipple enlargement [Recovered/Resolved]

NARRATIVE: CASE EVENT DATE: 20221101
